FAERS Safety Report 6819697-1 (Version None)
Quarter: 2010Q2

REPORT INFORMATION
  Report Type: 
  Country: None (occurrence: None)
  Receive Date: 20100630
  Receipt Date: 20100615
  Transmission Date: 20101027
  Serious: Yes (Death, Hospitalization, Other)
  Sender: FDA-Public Use
  Company Number: 617123

PATIENT
  Age: 77 Year
  Sex: Female

DRUGS (89)
  1. HEPARIN SODIUM [Suspect]
     Indication: DEEP VEIN THROMBOSIS
     Dosage: INTRAVENOUS DRIP
     Route: 041
     Dates: start: 20071221, end: 20071226
  2. HEPARIN SODIUM 25,000 UNITS IN DEXTROSE 5% [Suspect]
     Indication: ANTICOAGULANT THERAPY
     Dosage: INTRAVENOUS DRIP
     Route: 041
     Dates: start: 20071024, end: 20071101
  3. HEPARIN SODIUM 25,000 UNITS IN DEXTROSE 5% [Suspect]
     Indication: ANTICOAGULANT THERAPY
     Dosage: INTRAVENOUS DRIP
     Route: 041
     Dates: start: 20071112, end: 20071101
  4. HEPARIN SODIUM 25,000 UNITS IN DEXTROSE 5% [Suspect]
     Indication: ANTICOAGULANT THERAPY
     Dosage: INTRAVENOUS DRIP
     Route: 041
     Dates: start: 20071101, end: 20071106
  5. HEPARIN SODIUM [Suspect]
     Indication: HYPOXIA
     Dosage: SEE IMAGE
     Dates: start: 20071023, end: 20071023
  6. AMITRIPTYLINE HYDROCHLORIDE [Concomitant]
  7. ATENOLOL [Concomitant]
  8. CELEXA [Concomitant]
  9. (HYDROCHIOROTHIAZIDE) [Concomitant]
  10. VYTORIN [Concomitant]
  11. TYLENOL (CAPLET) [Concomitant]
  12. (ZOVIRAX  /00587301/) [Concomitant]
  13. ADENOCARD (ADENOSINE) OCM STAB. DATA FROM D97R + D971 (ADENOSINE) [Concomitant]
  14. (ALBUMIN /01102501/) [Concomitant]
  15. ALBUTEROL [Concomitant]
  16. ATIVAN [Concomitant]
  17. BENADRYL [Concomitant]
  18. REGULAR INSULIN [Concomitant]
  19. (CALCIUM CHLORIDE  /00203801/) [Concomitant]
  20. CANASA [Concomitant]
  21. (ANCEF  /00288502/) [Concomitant]
  22. (CORTROSYN  /00137801/) [Concomitant]
  23. (CULTURELLE) [Concomitant]
  24. (LACTOBACILLUS) [Concomitant]
  25. XIGRIS [Concomitant]
  26. (ETHEZYME) [Concomitant]
  27. (PARENTERAL) [Concomitant]
  28. (VASOPRESSIN) [Concomitant]
  29. EPINEPHRINE [Concomitant]
  30. EPOGEN [Concomitant]
  31. AMIDATE (ETOMIDATE INJECTION), 2 MG/MLM (ETOMIDATE) [Concomitant]
  32. NEXIUM [Concomitant]
  33. PEPCID [Concomitant]
  34. FENTANYL CITRATE INJECTION (FENTANYL CITRATE) [Concomitant]
  35. (FLORASTOR) [Concomitant]
  36. DIFLUCAN [Concomitant]
  37. FLORINEF [Concomitant]
  38. FORTAZ [Concomitant]
  39. (GLUCERNA) [Concomitant]
  40. (HALADOL /00027401/) [Concomitant]
  41. HETASTARCH IN 0.9% SODIUN CHLORIDE INUECTION (BA740193) (HETASTARCH ) [Concomitant]
  42. LORTAB [Concomitant]
  43. SOLU-CORTEF [Concomitant]
  44. MOTRIN [Concomitant]
  45. IPRATROPIUM BROMIDE [Concomitant]
  46. DILUADID HP 10 MG/ML (HYDROMORPHONE HYDROCHLORIDE) [Concomitant]
  47. POTASSIUM CHLORIDE [Concomitant]
  48. (LACTOBACILLUS REUTERI) [Concomitant]
  49. LANTUS [Concomitant]
  50. LASIX [Concomitant]
  51. LEVAQUIN [Concomitant]
  52. LEVOPHED (NORADRENALINE TARTRATE) [Concomitant]
  53. MAGNESIUM SULPHATE (MAGNESIUM SULPHATE) [Concomitant]
  54. (MERREM /01250501/) [Concomitant]
  55. METOPROLOL TARTRATE INJECTION, USP, 1MG/ML, 5 ML VIALS (METOPROLOL) [Concomitant]
  56. (FAGYL /00012501/) [Concomitant]
  57. (BETADINE /00080001/) [Concomitant]
  58. SEROQUEL [Concomitant]
  59. (RENAGEL /01459901/) [Concomitant]
  60. ZEMURON [Concomitant]
  61. SODIUM CITRATE [Concomitant]
  62. VANCOMYCIN [Concomitant]
  63. VENOFER [Concomitant]
  64. (VIT K ANTAGONISTS) [Concomitant]
  65. JANTOVEN [Concomitant]
  66. ZOFRAN [Concomitant]
  67. (ZOZYN) [Concomitant]
  68. ZYVOX [Concomitant]
  69. DEXTROSE 5% + 0.45% SOD. CHL INJ, USP (DEXTROSE AND SODIUM CHLORIDE) [Concomitant]
  70. DEXTOSE INJ  USP 50%  (DEXTOSE ) [Concomitant]
  71. INTROPIN [Concomitant]
  72. ALBUTEROL SULFATE AND IPRATROPIUM BROMIDE [Concomitant]
  73. (ANTIBACTERIALS FOR SYSTEMIC USE) [Concomitant]
  74. (BLOOD CELLS, PACKED HUMAN) [Concomitant]
  75. ROCEPHIN [Concomitant]
  76. FRESH FROZEN PLASMA [Concomitant]
  77. SODIUM CHLORIDE 0.9% INJ  (SODIUM CHLORIDE) [Concomitant]
  78. SODIUM CHLORIDE 0.45% INJ  USP (SODIUM CHLORIDE) [Concomitant]
  79. (PROCRIT /00909301/) [Concomitant]
  80. (PHOSPHO-SODA /00129701/) [Concomitant]
  81. ROWASA [Concomitant]
  82. SIMVASTATIN [Concomitant]
  83. EZETIMIBE [Concomitant]
  84. PERPHENAZINE AND AMITRIPTYLINE HCL [Concomitant]
  85. MORPHINE SULFATE [Concomitant]
  86. NYSTATIN [Concomitant]
  87. PROTONIX [Concomitant]
  88. (PREVALITE /01364901/) [Concomitant]
  89. (DIALYSATE) [Concomitant]

REACTIONS (38)
  - ACUTE RESPIRATORY DISTRESS SYNDROME [None]
  - ACUTE RESPIRATORY FAILURE [None]
  - BLOOD PRESSURE FLUCTUATION [None]
  - BRONCHIAL HYPERREACTIVITY [None]
  - CANDIDIASIS [None]
  - CLOSTRIDIUM DIFFICILE SEPSIS [None]
  - CONTINUOUS HAEMODIAFILTRATION [None]
  - DEEP VEIN THROMBOSIS [None]
  - DEHYDRATION [None]
  - DEVICE RELATED INFECTION [None]
  - FEMORAL ARTERY OCCLUSION [None]
  - FUNGAL INFECTION [None]
  - HAEMODIALYSIS [None]
  - HYPERLIPIDAEMIA [None]
  - HYPEROSMOLAR STATE [None]
  - HYPERTENSION [None]
  - HYPOTENSION [None]
  - ILEUS PARALYTIC [None]
  - ISCHAEMIC NEPHROPATHY [None]
  - LIVER FUNCTION TEST ABNORMAL [None]
  - LOBAR PNEUMONIA [None]
  - LOWER GASTROINTESTINAL HAEMORRHAGE [None]
  - METABOLIC ACIDOSIS [None]
  - MUSCLE HAEMORRHAGE [None]
  - PEPTIC ULCER [None]
  - PERIPHERAL EMBOLISM [None]
  - PERIPHERAL VASCULAR DISORDER [None]
  - PLEURAL EFFUSION [None]
  - PSEUDOMEMBRANOUS COLITIS [None]
  - RENAL TUBULAR NECROSIS [None]
  - RHABDOMYOLYSIS [None]
  - SEPSIS [None]
  - SHOCK [None]
  - STREPTOCOCCAL SEPSIS [None]
  - THROMBOCYTOPENIA [None]
  - URINARY TRACT INFECTION ENTEROCOCCAL [None]
  - URINARY TRACT INFECTION FUNGAL [None]
  - VASOCONSTRICTION [None]
